FAERS Safety Report 8233978-9 (Version None)
Quarter: 2012Q1

REPORT INFORMATION
  Report Type: 
  Country: None (occurrence: None)
  Receive Date: 20120326
  Receipt Date: 20120314
  Transmission Date: 20120608
  Serious: Yes (Other)
  Sender: FDA-Public Use
  Company Number: US-SANOFI-AVENTIS-2012SA017683

PATIENT
  Sex: Female

DRUGS (2)
  1. LANTUS [Suspect]
     Dosage: 18 UNITS IN THE AM AND 6 UNITS IN THE PM.
     Route: 058
  2. SOLOSTAR [Suspect]

REACTIONS (2)
  - VISUAL IMPAIRMENT [None]
  - HIP ARTHROPLASTY [None]
